FAERS Safety Report 5498670-2 (Version None)
Quarter: 2007Q4

REPORT INFORMATION
  Report Type: 
  Country: None (occurrence: None)
  Receive Date: 20071026
  Receipt Date: 20071013
  Transmission Date: 20080405
  Serious: Yes (Other)
  Sender: FDA-Public Use
  Company Number: US-PFIZER INC-2007088452

PATIENT
  Sex: Female
  Weight: 90.7 kg

DRUGS (16)
  1. CHANTIX [Suspect]
     Indication: EX-SMOKER
     Dosage: TEXT:0.5MG DAILY EVERY DAY TDD:0.5MG
  2. GEODON [Suspect]
     Indication: BIPOLAR DISORDER
     Dosage: TEXT:240MG DAILY EVERY DAY TDD:240MG
  3. ZOLOFT [Suspect]
     Indication: BIPOLAR DISORDER
  4. TRAZODONE HYDROCHLORIDE [Suspect]
     Indication: BIPOLAR DISORDER
     Dosage: TEXT:200MG DAILY EVERY DAY TDD:200MG
  5. LAMICTAL [Suspect]
     Indication: BIPOLAR DISORDER
     Dosage: TEXT:BID EVERY DAY TDD:300MG
  6. SEROQUEL [Suspect]
     Indication: BIPOLAR DISORDER
     Dosage: TEXT:100MG DAILY EVERY DAY TDD:100MG
  7. LITHIUM [Concomitant]
  8. HALDOL [Concomitant]
  9. XANAX [Concomitant]
  10. MINOCYCLINE HCL [Concomitant]
  11. OMEPRAZOLE [Concomitant]
  12. TAMSULOSIN HYDROCHLORIDE [Concomitant]
  13. COGENTIN [Concomitant]
  14. IBUPROFEN [Concomitant]
  15. TRETINOIN [Concomitant]
  16. ALL OTHER THERAPEUTIC PRODUCTS [Concomitant]

REACTIONS (6)
  - DEPRESSION [None]
  - FATIGUE [None]
  - NAUSEA [None]
  - SOMNOLENCE [None]
  - STOMACH DISCOMFORT [None]
  - VOMITING [None]
